FAERS Safety Report 24610889 (Version 4)
Quarter: 2025Q2

REPORT INFORMATION
  Report Type: Spontaneous
  Country: JP (occurrence: JP)
  Receive Date: 20241112
  Receipt Date: 20250623
  Transmission Date: 20250716
  Serious: Yes (Hospitalization, Other)
  Sender: BRISTOL-MYERS SQUIBB COMPANY
  Company Number: JP-BRISTOL-MYERS SQUIBB COMPANY-2024-175667

PATIENT

DRUGS (2)
  1. YERVOY [Suspect]
     Active Substance: IPILIMUMAB
     Indication: Non-small cell lung cancer
     Dosage: DOSE : OP: 360 MG, YV: 1MG/KG;     FREQ : OP: ONCE IN 3 WEEKS, YV: ONCE IN 6 WEEKS
     Route: 041
  2. OPDIVO [Suspect]
     Active Substance: NIVOLUMAB
     Indication: Non-small cell lung cancer
     Route: 041

REACTIONS (1)
  - Cholangitis sclerosing [Recovering/Resolving]
